FAERS Safety Report 4784543-7 (Version None)
Quarter: 2005Q3

REPORT INFORMATION
  Report Type: 
  Country: None (occurrence: None)
  Receive Date: 20050930
  Receipt Date: 20050923
  Transmission Date: 20060218
  Serious: Yes (Death)
  Sender: FDA-Public Use
  Company Number: ID-JNJFOC-20050903647

PATIENT
  Age: 64 Year
  Sex: Female
  Weight: 52 kg

DRUGS (2)
  1. FENTANYL [Suspect]
     Route: 062
  2. METOCLOPRAMIDE HYDROCHLORIDE [Concomitant]
     Indication: NAUSEA
     Route: 048

REACTIONS (4)
  - APATHY [None]
  - DEHYDRATION [None]
  - PAIN [None]
  - RESPIRATORY FAILURE [None]
